FAERS Safety Report 19482782 (Version 1)
Quarter: 2021Q3

REPORT INFORMATION
  Report Type: Other
  Country: US (occurrence: US)
  Receive Date: 20210701
  Receipt Date: 20210701
  Transmission Date: 20211014
  Serious: Yes (Hospitalization, Other)
  Sender: FDA-Public Use
  Company Number: US-ROCHE-2858360

PATIENT
  Age: 67 Year
  Sex: Female
  Weight: 74.46 kg

DRUGS (19)
  1. ACYCLOVIR. [Concomitant]
     Active Substance: ACYCLOVIR
     Indication: HERPES ZOSTER
     Route: 048
     Dates: start: 2019
  2. GABAPENTIN. [Concomitant]
     Active Substance: GABAPENTIN
     Route: 048
  3. PREMARIN [Concomitant]
     Active Substance: ESTROGENS, CONJUGATED
     Indication: HOT FLUSH
     Route: 048
     Dates: start: 1975
  4. SINGULAIR [Concomitant]
     Active Substance: MONTELUKAST SODIUM
  5. MONTELUKAST [Concomitant]
     Active Substance: MONTELUKAST SODIUM
     Indication: DUST ALLERGY
     Route: 048
  6. OCREVUS [Suspect]
     Active Substance: OCRELIZUMAB
     Indication: RELAPSING MULTIPLE SCLEROSIS
  7. MECLIZINE [Concomitant]
     Active Substance: MECLIZINE HYDROCHLORIDE
     Indication: LETHARGY
     Route: 048
  8. ZYRTEC (UNITED STATES) [Concomitant]
     Indication: DUST ALLERGY
     Route: 048
  9. OCREVUS [Suspect]
     Active Substance: OCRELIZUMAB
     Indication: RELAPSING-REMITTING MULTIPLE SCLEROSIS
     Dosage: DATE OF TREATMENT: 12/MAY/2021, 29/OCT/2020?INFUSE 300 MG ON DAY 1 AND DAY 15
     Route: 042
     Dates: start: 20201029
  10. TOVIAZ [Concomitant]
     Active Substance: FESOTERODINE FUMARATE
  11. MYRBETRIQ [Concomitant]
     Active Substance: MIRABEGRON
     Route: 048
     Dates: start: 20210512
  12. ULTRAM [Concomitant]
     Active Substance: TRAMADOL HYDROCHLORIDE
  13. BACLOFEN. [Concomitant]
     Active Substance: BACLOFEN
     Dosage: UP TO 8 PILLS/DAY, PATIENT TAKES 3 TO 4/DAY
     Route: 048
  14. DULOXETINE. [Concomitant]
     Active Substance: DULOXETINE
     Indication: DEPRESSION
     Route: 048
  15. CYCLOBENZAPRINE. [Suspect]
     Active Substance: CYCLOBENZAPRINE
     Indication: UNEVALUABLE EVENT
     Dosage: UP TO 4/DAY, PATIENT TAKES 1 AT BED TIME
     Route: 048
  16. TRAMADOL. [Concomitant]
     Active Substance: TRAMADOL
     Indication: PAIN
     Dosage: TWO 10 MG TABLETS 4 TIMES A DAY
     Route: 048
  17. MODAFINIL. [Concomitant]
     Active Substance: MODAFINIL
     Indication: LETHARGY
     Route: 048
  18. FLUTICASONE. [Concomitant]
     Active Substance: FLUTICASONE
     Indication: DUST ALLERGY
     Dosage: ONE 50 MCG SPRAY TO EACH NOSTRIL BEFORE BED
     Route: 045
  19. MECLIZINE HCL [Concomitant]
     Active Substance: MECLIZINE HYDROCHLORIDE

REACTIONS (8)
  - Urinary tract infection [Recovered/Resolved]
  - Tremor [Not Recovered/Not Resolved]
  - Somnolence [Unknown]
  - Heart rate abnormal [Recovered/Resolved]
  - Skin disorder [Unknown]
  - Hallucination [Unknown]
  - Sepsis [Recovered/Resolved]
  - Multiple sclerosis relapse [Unknown]

NARRATIVE: CASE EVENT DATE: 20210420
